FAERS Safety Report 4273566-2 (Version None)
Quarter: 2004Q1

REPORT INFORMATION
  Report Type: 
  Country: None (occurrence: None)
  Receive Date: 20040114
  Receipt Date: 20020207
  Transmission Date: 20041129
  Serious: Yes (Hospitalization, Other)
  Sender: FDA-Public Use
  Company Number: WAES 01072106

PATIENT
  Age: 71 Year
  Sex: Female

DRUGS (6)
  1. VIOXX [Suspect]
     Indication: LOCALISED OSTEOARTHRITIS
     Dosage: 25 MG/DAILY PO
     Route: 048
     Dates: start: 20010629, end: 20010710
  2. TAB PLACEBO [Suspect]
     Indication: LOCALISED OSTEOARTHRITIS
     Dosage: PO
     Route: 048
     Dates: start: 20010629, end: 20010710
  3. FOSAMAX [Concomitant]
  4. TYLENOL [Concomitant]
  5. ZOCOR [Concomitant]
  6. ASPIRIN [Concomitant]

REACTIONS (10)
  - ANAEMIA [None]
  - DUODENAL ULCER [None]
  - DUODENITIS [None]
  - EROSIVE DUODENITIS [None]
  - GASTRIC ULCER [None]
  - HAEMATEMESIS [None]
  - HELICOBACTER INFECTION [None]
  - MELAENA [None]
  - OESOPHAGITIS ULCERATIVE [None]
  - UPPER GASTROINTESTINAL HAEMORRHAGE [None]
